FAERS Safety Report 15263855 (Version 1)
Quarter: 2018Q3

REPORT INFORMATION
  Report Type: Spontaneous
  Country: US (occurrence: US)
  Receive Date: 20180720
  Receipt Date: 20180720
  Transmission Date: 20181010
  Serious: No
  Sender: FDA-Public Use
  Company Number: None

PATIENT
  Age: 72 Year
  Sex: Female
  Weight: 97.2 kg

DRUGS (2)
  1. VERZENIO [Suspect]
     Active Substance: ABEMACICLIB
     Route: 048
     Dates: start: 20180423
  2. VERZENIO [Concomitant]
     Active Substance: ABEMACICLIB
     Dates: start: 20180423

REACTIONS (1)
  - Renal disorder [None]

NARRATIVE: CASE EVENT DATE: 20180720
